FAERS Safety Report 5730308-9 (Version None)
Quarter: 2008Q2

REPORT INFORMATION
  Report Type: 
  Country: None (occurrence: None)
  Receive Date: 20080505
  Receipt Date: 20080505
  Transmission Date: 20081010
  Serious: No
  Sender: FDA-Public Use
  Company Number: None

PATIENT
  Age: 54 Year
  Sex: Male
  Weight: 97.5234 kg

DRUGS (1)
  1. CRESTOR [Suspect]
     Indication: POLYMYOSITIS
     Dosage: 40 MG DAILY PO
     Route: 048
     Dates: start: 20030308, end: 20070610

REACTIONS (9)
  - ABASIA [None]
  - ASTHENIA [None]
  - GAIT DISTURBANCE [None]
  - GENERAL PHYSICAL HEALTH DETERIORATION [None]
  - MUSCULAR WEAKNESS [None]
  - MYOPATHY TOXIC [None]
  - NERVE COMPRESSION [None]
  - TENDERNESS [None]
  - WALKING AID USER [None]
